FAERS Safety Report 4767230-0 (Version None)
Quarter: 2005Q3

REPORT INFORMATION
  Report Type: 
  Country: None (occurrence: None)
  Receive Date: 20050913
  Receipt Date: 20050906
  Transmission Date: 20060218
  Serious: Yes (Other)
  Sender: FDA-Public Use
  Company Number: PHNU2005DE03065

PATIENT
  Sex: Male

DRUGS (2)
  1. ZOMETA [Suspect]
     Indication: MULTIPLE MYELOMA
     Dosage: 4 MG, QMO
     Route: 042
     Dates: start: 20030101
  2. BONDRONAT [Concomitant]
     Indication: MULTIPLE MYELOMA
     Route: 065
     Dates: start: 20030101, end: 20030101

REACTIONS (2)
  - BACTERIAL INFECTION [None]
  - OSTEOMYELITIS [None]
